FAERS Safety Report 6300449-6 (Version None)
Quarter: 2009Q3

REPORT INFORMATION
  Report Type: 
  Country: None (occurrence: None)
  Receive Date: 20090806
  Receipt Date: 20081023
  Transmission Date: 20100115
  Serious: No
  Sender: FDA-Public Use
  Company Number: US-ABBOTT-08P-163-0483397-00

PATIENT
  Sex: Female

DRUGS (4)
  1. DEPAKOTE ER [Suspect]
     Indication: BIPOLAR DISORDER
     Route: 048
     Dates: start: 20080601
  2. DEPAKOTE ER [Suspect]
     Route: 048
     Dates: end: 20081018
  3. LAMISIL [Concomitant]
     Indication: BIPOLAR DISORDER
  4. BUPROPION HCL [Concomitant]
     Indication: BIPOLAR DISORDER

REACTIONS (1)
  - ALOPECIA [None]
